FAERS Safety Report 20627939 (Version 1)
Quarter: 2022Q1

REPORT INFORMATION
  Report Type: Spontaneous
  Country: US (occurrence: US)
  Receive Date: 20220323
  Receipt Date: 20220323
  Transmission Date: 20220423
  Serious: No
  Sender: FDA-Public Use
  Company Number: US-GW PHARMA-202203USGW01369

PATIENT
  Sex: Male

DRUGS (2)
  1. EPIDIOLEX [Suspect]
     Active Substance: CANNABIDIOL
     Indication: Lennox-Gastaut syndrome
     Dosage: 880 MILLIGRAM
     Route: 048
     Dates: start: 201906
  2. EPIDIOLEX [Suspect]
     Active Substance: CANNABIDIOL
     Dosage: 440 MILLIGRAM, BID
     Route: 048
     Dates: start: 20211112

REACTIONS (2)
  - Weight increased [Unknown]
  - Seizure [Unknown]

NARRATIVE: CASE EVENT DATE: 20220101
